FAERS Safety Report 5520891-0 (Version None)
Quarter: 2007Q4

REPORT INFORMATION
  Report Type: 
  Country: None (occurrence: None)
  Receive Date: 20071119
  Receipt Date: 20071116
  Transmission Date: 20080405
  Serious: Yes (Other)
  Sender: FDA-Public Use
  Company Number: B0495796A

PATIENT
  Age: 44 Year
  Sex: Male
  Weight: 82.4 kg

DRUGS (5)
  1. ROSIGLITAZONE [Suspect]
     Indication: TYPE 2 DIABETES MELLITUS
     Route: 048
     Dates: start: 20050928, end: 20070727
  2. METFORMIN HYDROCHLORIDE [Concomitant]
     Indication: TYPE 2 DIABETES MELLITUS
     Route: 048
     Dates: start: 20050721
  3. RAMIPRIL [Concomitant]
     Indication: HYPERTENSION
     Route: 048
     Dates: start: 20051104
  4. ASPIRIN [Concomitant]
     Indication: TYPE 2 DIABETES MELLITUS
     Route: 048
     Dates: start: 20051019
  5. SIMVASTATIN [Concomitant]
     Indication: HYPERCHOLESTEROLAEMIA
     Route: 048
     Dates: start: 20070326

REACTIONS (2)
  - CARDIAC DISORDER [None]
  - CHEST PAIN [None]
